FAERS Safety Report 23265512 (Version 1)
Quarter: 2023Q4

REPORT INFORMATION
  Report Type: Spontaneous
  Country: CN (occurrence: CN)
  Receive Date: 20231206
  Receipt Date: 20231206
  Transmission Date: 20240110
  Serious: Yes (Hospitalization)
  Sender: FDA-Public Use
  Company Number: CN-BAYER-2023A172614

PATIENT
  Age: 22 Year
  Sex: Female
  Weight: 51 kg

DRUGS (1)
  1. RIVAROXABAN [Suspect]
     Active Substance: RIVAROXABAN
     Indication: Anticoagulant therapy
     Dosage: 15 MG, BID
     Route: 048
     Dates: start: 20231016, end: 20231024

REACTIONS (5)
  - Drug eruption [Recovered/Resolved]
  - Rash pruritic [Recovered/Resolved]
  - Contraindicated product administered [Unknown]
  - Contraindicated product prescribed [Unknown]
  - Labelled drug-disease interaction issue [Unknown]

NARRATIVE: CASE EVENT DATE: 20231016
